FAERS Safety Report 23127167 (Version 3)
Quarter: 2024Q1

REPORT INFORMATION
  Report Type: Report from Study
  Country: US (occurrence: US)
  Receive Date: 20231030
  Receipt Date: 20240326
  Transmission Date: 20240410
  Serious: Yes (Other)
  Sender: FDA-Public Use
  Company Number: US-ABBVIE-5331478

PATIENT
  Sex: Female

DRUGS (4)
  1. SKYRIZI [Suspect]
     Active Substance: RISANKIZUMAB-RZAA
     Indication: Psoriatic arthropathy
     Dosage: WEEK 4?STRENGTH:150MG/ML
     Route: 058
     Dates: start: 20230206, end: 20230206
  2. SKYRIZI [Suspect]
     Active Substance: RISANKIZUMAB-RZAA
     Indication: Psoriasis
     Dosage: STRENGTH:150MG/ML?EVERY 12 WEEKS THEREAFTER
     Route: 058
     Dates: start: 202307, end: 202307
  3. SKYRIZI [Suspect]
     Active Substance: RISANKIZUMAB-RZAA
     Dosage: STRENGTH:150MG/ML, WEEK 0
     Route: 058
     Dates: start: 20230110, end: 20230110
  4. SKYRIZI [Suspect]
     Active Substance: RISANKIZUMAB-RZAA
     Indication: Psoriasis
     Route: 058
     Dates: start: 20240211

REACTIONS (5)
  - Mycobacterium tuberculosis complex test positive [Unknown]
  - Infectious mononucleosis [Recovering/Resolving]
  - Latent tuberculosis [Recovered/Resolved]
  - Arthralgia [Recovered/Resolved]
  - Hepatic enzyme increased [Recovering/Resolving]

NARRATIVE: CASE EVENT DATE: 20230101
